FAERS Safety Report 26010726 (Version 1)
Quarter: 2025Q4

REPORT INFORMATION
  Report Type: Spontaneous
  Country: EU (occurrence: EU)
  Receive Date: 20251107
  Receipt Date: 20251107
  Transmission Date: 20260117
  Serious: Yes (Death)
  Sender: RANBAXY
  Company Number: None

PATIENT
  Age: 83 Year
  Sex: Female

DRUGS (6)
  1. SERTRALINE [Interacting]
     Active Substance: SERTRALINE HYDROCHLORIDE
     Indication: Product used for unknown indication
     Dosage: 50 MILLIGRAM, QD
     Route: 048
     Dates: start: 20150702
  2. FLECAINIDE ACETATE [Interacting]
     Active Substance: FLECAINIDE ACETATE
     Indication: Atrial fibrillation
     Dosage: 100 MILLIGRAM, BID, 100 MG TABLETS, 30 TABLETS
     Route: 048
     Dates: start: 20150708, end: 20250702
  3. COSOPT [Interacting]
     Active Substance: DORZOLAMIDE HYDROCHLORIDE\TIMOLOL MALEATE
     Indication: Product used for unknown indication
     Dosage: 20 MG/ML + 5 MG/ML EYE DROPS SOLUTION, 1 BOTTLE OF 5 ML
     Route: 047
     Dates: start: 20150702
  4. BISOPROLOL [Interacting]
     Active Substance: BISOPROLOL
     Indication: Product used for unknown indication
     Dosage: 2.5 MILLIGRAM, QD, 2.5 MG FILM-COATED TABLETS EFG, 28 TABLETS
     Route: 048
     Dates: start: 20150702
  5. FUROSEMIDE [Concomitant]
     Active Substance: FUROSEMIDE
     Indication: Product used for unknown indication
     Dosage: 20 MILLIGRAM, QD, 40 MG TABLETS EFG, 30 TABLETS
     Route: 048
     Dates: start: 20150702
  6. EPLERENONE [Concomitant]
     Active Substance: EPLERENONE
     Indication: Product used for unknown indication
     Dosage: 25 MILLIGRAM, QD, ALTER 25 MG FILM-COATED TABLETS EFG, 30 TABLETS
     Route: 048
     Dates: start: 20150702

REACTIONS (1)
  - Cardio-respiratory arrest [Fatal]

NARRATIVE: CASE EVENT DATE: 20250702
